FAERS Safety Report 5621628-7 (Version None)
Quarter: 2008Q1

REPORT INFORMATION
  Report Type: 
  Country: None (occurrence: None)
  Receive Date: 20080130
  Receipt Date: 20080114
  Transmission Date: 20080703
  Serious: Yes (Other)
  Sender: FDA-Public Use
  Company Number: B0505022A

PATIENT
  Age: 39 Year
  Sex: Female

DRUGS (1)
  1. NICOTINE POLACRILEX [Suspect]
     Dosage: 15 GUM / PER DAY / TRANSBUCCAL

REACTIONS (1)
  - DEPENDENCE [None]
